FAERS Safety Report 20902513 (Version 3)
Quarter: 2022Q3

REPORT INFORMATION
  Report Type: Report from Study
  Country: US (occurrence: US)
  Receive Date: 20220601
  Receipt Date: 20220825
  Transmission Date: 20221026
  Serious: Yes (Other)
  Sender: FDA-Public Use
  Company Number: US-CELGENE-USA-20220300658

PATIENT
  Age: 56 Year
  Sex: Male

DRUGS (1)
  1. ZEPOSIA [Suspect]
     Active Substance: OZANIMOD HYDROCHLORIDE
     Indication: Colitis ulcerative
     Route: 048
     Dates: start: 20220201

REACTIONS (9)
  - Rectal haemorrhage [Unknown]
  - Periorbital swelling [Recovering/Resolving]
  - Muscular weakness [Unknown]
  - Frequent bowel movements [Recovering/Resolving]
  - Defaecation urgency [Recovering/Resolving]
  - Muscle atrophy [Unknown]
  - Diarrhoea [Unknown]
  - Somnolence [Unknown]
  - Contusion [Unknown]

NARRATIVE: CASE EVENT DATE: 20220225
